FAERS Safety Report 21692066 (Version 2)
Quarter: 2022Q4

REPORT INFORMATION
  Report Type: Spontaneous
  Country: US (occurrence: US)
  Receive Date: 20221207
  Receipt Date: 20221216
  Transmission Date: 20230113
  Serious: No
  Sender: FDA-Public Use
  Company Number: US-Biofrontera-2022BIO00062

PATIENT
  Age: 57 Year
  Sex: Male

DRUGS (1)
  1. AMELUZ [Suspect]
     Active Substance: AMINOLEVULINIC ACID HYDROCHLORIDE
     Indication: Actinic keratosis
     Route: 061
     Dates: start: 20221111, end: 20221111

REACTIONS (5)
  - Pain [Unknown]
  - Application site plaque [Unknown]
  - Application site scab [Unknown]
  - Skin infection [Unknown]
  - Application site oedema [Unknown]

NARRATIVE: CASE EVENT DATE: 20221101
